FAERS Safety Report 9791190 (Version 1)
Quarter: 2013Q4

REPORT INFORMATION
  Report Type: Spontaneous
  Country: BR (occurrence: BR)
  Receive Date: 20131231
  Receipt Date: 20131231
  Transmission Date: 20140711
  Serious: Yes (Hospitalization)
  Sender: FDA-Public Use
  Company Number: BR-TAKEDA-2013TUS003464

PATIENT
  Sex: 0

DRUGS (1)
  1. LANSOPRAZOLE [Suspect]
     Indication: PEPTIC ULCER
     Dosage: UNK

REACTIONS (4)
  - Blister [Recovering/Resolving]
  - Vulvovaginal pruritus [Unknown]
  - Eye pruritus [Unknown]
  - Rash macular [Recovering/Resolving]
